FAERS Safety Report 11706289 (Version 5)
Quarter: 2016Q2

REPORT INFORMATION
  Report Type: Spontaneous
  Country: US (occurrence: US)
  Receive Date: 20151106
  Receipt Date: 20160530
  Transmission Date: 20160815
  Serious: Yes (Other)
  Sender: FDA-Public Use
  Company Number: PHEH2015US021943

PATIENT
  Sex: Female

DRUGS (10)
  1. FOLATE [Concomitant]
     Active Substance: FOLATE SODIUM
     Indication: PRODUCT USED FOR UNKNOWN INDICATION
     Route: 065
  2. TASIGNA [Suspect]
     Active Substance: NILOTINIB
     Indication: LEUKAEMIA
     Dosage: 300 MG, BID (TWO TIMES PER DAY)
     Route: 048
     Dates: start: 20151020
  3. ARIMIDEX [Concomitant]
     Active Substance: ANASTROZOLE
     Indication: PRODUCT USED FOR UNKNOWN INDICATION
     Dosage: 1 MG, QD
     Route: 065
  4. CALCIUM [Concomitant]
     Active Substance: CALCIUM
     Indication: PRODUCT USED FOR UNKNOWN INDICATION
     Route: 065
  5. B6 [Concomitant]
     Active Substance: PYRIDOXINE HYDROCHLORIDE
     Indication: PRODUCT USED FOR UNKNOWN INDICATION
     Route: 065
  6. VITAMIN D3 [Concomitant]
     Active Substance: CHOLECALCIFEROL
     Indication: PRODUCT USED FOR UNKNOWN INDICATION
     Dosage: 2500 IU, UNK
     Route: 065
  7. VITAMIN B12 [Concomitant]
     Active Substance: CYANOCOBALAMIN
     Indication: PRODUCT USED FOR UNKNOWN INDICATION
     Route: 065
  8. MINOCYCLINE [Suspect]
     Active Substance: MINOCYCLINE\MINOCYCLINE HYDROCHLORIDE
     Indication: PRODUCT USED FOR UNKNOWN INDICATION
     Route: 065
  9. VITAMIN D [Concomitant]
     Active Substance: CHOLECALCIFEROL
     Indication: PRODUCT USED FOR UNKNOWN INDICATION
     Route: 065
  10. CITRACAL [Concomitant]
     Active Substance: CALCIUM CITRATE
     Indication: PRODUCT USED FOR UNKNOWN INDICATION
     Route: 065

REACTIONS (13)
  - Breast cancer [Unknown]
  - Muscle spasms [Unknown]
  - Muscle strain [Unknown]
  - Pain in extremity [Recovered/Resolved]
  - Headache [Not Recovered/Not Resolved]
  - Fatigue [Unknown]
  - Second primary malignancy [Unknown]
  - Rash [Unknown]
  - Myalgia [Recovered/Resolved]
  - Headache [Recovered/Resolved]
  - Neck pain [Unknown]
  - Ear pain [Recovered/Resolved]
  - Odynophagia [Unknown]
